FAERS Safety Report 25210455 (Version 2)
Quarter: 2025Q2

REPORT INFORMATION
  Report Type: Spontaneous
  Country: US (occurrence: US)
  Receive Date: 20250417
  Receipt Date: 20250513
  Transmission Date: 20250716
  Serious: No
  Sender: PFIZER
  Company Number: US-PFIZER INC-202500066458

PATIENT
  Age: 77 Year
  Sex: Female

DRUGS (11)
  1. ENBREL [Suspect]
     Active Substance: ETANERCEPT
  2. RUXIENCE [Suspect]
     Active Substance: RITUXIMAB-PVVR
  3. RITUXAN [Suspect]
     Active Substance: RITUXIMAB
  4. HUMIRA [Suspect]
     Active Substance: ADALIMUMAB
  5. CELEBREX [Suspect]
     Active Substance: CELECOXIB
  6. SPIRONOLACTONE [Concomitant]
     Active Substance: SPIRONOLACTONE
  7. FAMOTIDINE [Concomitant]
     Active Substance: FAMOTIDINE
  8. BENADRYL [Concomitant]
     Active Substance: DIPHENHYDRAMINE HYDROCHLORIDE
  9. AMLODIPINE [Concomitant]
     Active Substance: AMLODIPINE BESYLATE
  10. BYSTOLIC [Concomitant]
     Active Substance: NEBIVOLOL HYDROCHLORIDE
  11. TYLENOL [Concomitant]
     Active Substance: ACETAMINOPHEN

REACTIONS (1)
  - Drug hypersensitivity [Recovering/Resolving]
